FAERS Safety Report 15937619 (Version 1)
Quarter: 2019Q1

REPORT INFORMATION
  Report Type: Spontaneous
  Country: US (occurrence: US)
  Receive Date: 20190208
  Receipt Date: 20190208
  Transmission Date: 20190417
  Serious: No
  Sender: FDA-Public Use
  Company Number: US-ICU MEDICAL, INC.-ICU2018US00017

PATIENT

DRUGS (3)
  1. 0.9% SODIUM CHLORIDE INJECTION USP (250 ML) [Suspect]
     Active Substance: SODIUM CHLORIDE
     Indication: MEDICATION DILUTION
     Dosage: UNK
     Route: 042
     Dates: start: 20180514
  2. ACTEMRA [Suspect]
     Active Substance: TOCILIZUMAB
     Indication: PRODUCT USED FOR UNKNOWN INDICATION
     Dosage: UNK
     Route: 042
     Dates: start: 20180514, end: 20180611
  3. 0.9% SODIUM CHLORIDE INJECTION USP (250 ML) [Suspect]
     Active Substance: SODIUM CHLORIDE
     Dosage: UNK

REACTIONS (2)
  - No adverse event [Unknown]
  - Recalled product administered [Unknown]

NARRATIVE: CASE EVENT DATE: 20180514
